FAERS Safety Report 18066672 (Version 1)
Quarter: 2020Q3

REPORT INFORMATION
  Report Type: Spontaneous
  Country: FR (occurrence: FR)
  Receive Date: 20200724
  Receipt Date: 20200724
  Transmission Date: 20201103
  Serious: Yes (Other)
  Sender: FDA-Public Use
  Company Number: FR-MYLANLABS-2020M1066092

PATIENT
  Age: 42 Year
  Sex: Female

DRUGS (2)
  1. KIVEXA [Concomitant]
     Active Substance: ABACAVIR SULFATE\LAMIVUDINE
     Dosage: 1 DOSAGE FORM, QD
     Route: 048
     Dates: start: 20130102
  2. NEVIRAPINE MYLAN 200 MG, COMPRIM? [Suspect]
     Active Substance: NEVIRAPINE
     Indication: HIV INFECTION
     Dosage: 1 DOSAGE FORM, QD
     Route: 048
     Dates: start: 201812, end: 20200503

REACTIONS (3)
  - Product substitution issue [Recovered/Resolved]
  - Product residue present [Recovered/Resolved]
  - Blood HIV RNA increased [Not Recovered/Not Resolved]

NARRATIVE: CASE EVENT DATE: 201907
